FAERS Safety Report 17801888 (Version 1)
Quarter: 2020Q2

REPORT INFORMATION
  Report Type: Spontaneous
  Country: US (occurrence: US)
  Receive Date: 20200519
  Receipt Date: 20200519
  Transmission Date: 20200714
  Serious: No
  Sender: FDA-Public Use
  Company Number: US-SA-2020SA127523

PATIENT
  Age: 57 Year
  Sex: Female

DRUGS (11)
  1. METHOTREXATE. [Concomitant]
     Active Substance: METHOTREXATE
  2. BIOTIN [Concomitant]
     Active Substance: BIOTIN
  3. MAGNESIUM OXIDE. [Concomitant]
     Active Substance: MAGNESIUM OXIDE
  4. GABAPENTIN. [Concomitant]
     Active Substance: GABAPENTIN
  5. DUPIXENT [Suspect]
     Active Substance: DUPILUMAB
     Indication: PRODUCT USED FOR UNKNOWN INDICATION
     Dosage: 300 MG, QOW
     Route: 058
  6. PRENATAL PLUS [Concomitant]
     Active Substance: .ALPHA.-TOCOPHEROL ACETATE, DL-\.BETA.-CAROTENE\ASCORBIC ACID\CALCIUM CARBONATE\CHOLECALCIFEROL\CUPRIC OXIDE\CYANOCOBALAMIN\FERROUS FUMARATE\FOLIC ACID\NIACINAMIDE\PYRIDOXINE HYDROCHLORIDE\RIBOFLAVIN\THIAMINE MONONITRATE\VITAMIN A ACETATE\ZINC OXIDE
  7. CELEXA [CELECOXIB] [Concomitant]
     Active Substance: CELECOXIB
  8. FOLIC ACID. [Concomitant]
     Active Substance: FOLIC ACID
  9. OXYCODONE [Concomitant]
     Active Substance: OXYCODONE
  10. CLONAZEPAM. [Concomitant]
     Active Substance: CLONAZEPAM
  11. VITAMIN D NOS [Concomitant]
     Active Substance: VITAMIN D NOS

REACTIONS (3)
  - Contusion [Unknown]
  - Rash papular [Unknown]
  - Visual impairment [Unknown]
